FAERS Safety Report 21056288 (Version 1)
Quarter: 2022Q3

REPORT INFORMATION
  Report Type: Spontaneous
  Country: DE (occurrence: DE)
  Receive Date: 20220708
  Receipt Date: 20220708
  Transmission Date: 20221027
  Serious: Yes (Other)
  Sender: FDA-Public Use
  Company Number: DE-BFARM-22004591

PATIENT
  Age: 58 Year
  Sex: Female

DRUGS (6)
  1. MIRTAZAPINE [Suspect]
     Active Substance: MIRTAZAPINE
     Indication: Product used for unknown indication
     Dosage: 30 MILLIGRAM, ONCE A DAY
     Route: 048
     Dates: start: 20210601, end: 20210927
  2. MIRTAZAPINE [Suspect]
     Active Substance: MIRTAZAPINE
     Dosage: 15 MILLIGRAM, ONCE A DAY
     Route: 048
     Dates: start: 20210928
  3. AMLODIPINE BESYLATE [Concomitant]
     Active Substance: AMLODIPINE BESYLATE
     Indication: Product used for unknown indication
     Dosage: 5 MILLIGRAM, ONCE A DAY (SEIT LANGEM)
     Route: 048
  4. RAMIPRIL [Concomitant]
     Active Substance: RAMIPRIL
     Indication: Product used for unknown indication
     Dosage: 5 MILLIGRAM, ONCE A DAY (SEIT LANGEM)`
     Route: 048
  5. SERTRALINE [Concomitant]
     Active Substance: SERTRALINE HYDROCHLORIDE
     Indication: Product used for unknown indication
     Dosage: 25 MILLIGRAM, ONCE A DAY
     Route: 048
     Dates: start: 20210923
  6. SERTRALINE [Concomitant]
     Active Substance: SERTRALINE HYDROCHLORIDE
     Dosage: 50 MILLIGRAM, ONCE A DAY
     Route: 048
     Dates: start: 20210928

REACTIONS (6)
  - Asthenia [Recovered/Resolved]
  - Agitation [Recovered/Resolved]
  - Condition aggravated [Recovered/Resolved]
  - Merycism [Recovered/Resolved]
  - Restless legs syndrome [Recovered/Resolved]
  - Sleep disorder [Recovered/Resolved]

NARRATIVE: CASE EVENT DATE: 20210101
